FAERS Safety Report 7451499-8 (Version None)
Quarter: 2011Q2

REPORT INFORMATION
  Report Type: 
  Country: None (occurrence: None)
  Receive Date: 20110502
  Receipt Date: 20110421
  Transmission Date: 20111010
  Serious: Yes (Hospitalization, Other)
  Sender: FDA-Public Use
  Company Number: BR-GENZYME-CERZ-1001615

PATIENT

DRUGS (2)
  1. CEREZYME [Suspect]
     Indication: GAUCHER'S DISEASE
     Dosage: 30.3 U/KG, Q2W
     Route: 042
     Dates: start: 20100825, end: 20101201
  2. FLUIMICIL [Concomitant]
     Indication: PRODUCT USED FOR UNKNOWN INDICATION
     Route: 065

REACTIONS (5)
  - GASTROSTOMY [None]
  - DYSPNOEA [None]
  - DYSPHAGIA [None]
  - SALIVARY HYPERSECRETION [None]
  - CYANOSIS [None]
